FAERS Safety Report 7914546-2 (Version None)
Quarter: 2011Q4

REPORT INFORMATION
  Report Type: 
  Country: None (occurrence: None)
  Receive Date: 20111115
  Receipt Date: 20111031
  Transmission Date: 20120403
  Serious: Yes (Hospitalization, Other)
  Sender: FDA-Public Use
  Company Number: PHHY2011JP66812

PATIENT
  Sex: Female
  Weight: 64 kg

DRUGS (17)
  1. SANDOSTATIN LAR [Suspect]
     Dosage: 20 MG, QMO
     Route: 030
     Dates: start: 20110517
  2. CANDESARTAN CILEXETIL [Concomitant]
     Dosage: UNK
  3. JUSO [Concomitant]
     Indication: METABOLIC ACIDOSIS
     Dosage: 1 G 3 TIMES DAILY
     Route: 048
     Dates: start: 20110713
  4. ALFAROL [Concomitant]
     Indication: HYPOCALCAEMIA
     Dosage: 0.25 MG
     Route: 048
     Dates: start: 20110721
  5. NESPO [Concomitant]
     Indication: NEPHROGENIC ANAEMIA
     Dosage: UNK
     Dates: start: 20110725
  6. TRICHLORMETHIAZIDE [Concomitant]
     Dosage: UNK
  7. SANDOSTATIN LAR [Suspect]
     Indication: ACROMEGALY
     Dosage: 20 MG, QMO
     Route: 030
     Dates: start: 20110419
  8. LASIX [Concomitant]
     Indication: HYPERTENSION
     Dosage: 10 MG 3 TIMES DAILY
     Route: 048
     Dates: start: 20110713
  9. WYTENS [Concomitant]
     Indication: HYPERTENSION
     Dosage: 4 MG
     Route: 048
  10. ALOSENN [Concomitant]
     Indication: CONSTIPATION
     Dosage: 1 G
     Route: 048
  11. ATENOLOL [Concomitant]
     Indication: HYPERTENSION
     Dosage: UNK
     Route: 048
     Dates: start: 20110725
  12. SANDOSTATIN LAR [Suspect]
     Dosage: 20 MG, QMO
     Route: 030
     Dates: start: 20110614
  13. SANDOSTATIN LAR [Suspect]
     Dosage: 20 MG, QMO
     Route: 030
     Dates: start: 20110713
  14. TENORMIN [Concomitant]
     Indication: HYPERTENSION
     Dosage: 25 MG
     Dates: start: 20110726, end: 20110816
  15. CONIEL [Concomitant]
     Dosage: UNK
  16. ALLOPURINOL [Concomitant]
     Indication: HYPERURICAEMIA
     Dosage: 100 MG
     Route: 048
  17. FERROUS CITRATE [Concomitant]
     Indication: NEPHROGENIC ANAEMIA
     Dosage: 100 MG
     Route: 048

REACTIONS (9)
  - HYPERKALAEMIA [None]
  - ACUTE PRERENAL FAILURE [None]
  - RENAL FAILURE CHRONIC [None]
  - VOLUME BLOOD DECREASED [None]
  - INSULIN-LIKE GROWTH FACTOR INCREASED [None]
  - RENAL IMPAIRMENT [None]
  - PITUITARY CYST [None]
  - BLOOD CREATININE INCREASED [None]
  - BLOOD UREA INCREASED [None]
